FAERS Safety Report 8027802-7 (Version None)
Quarter: 2012Q1

REPORT INFORMATION
  Report Type: 
  Country: None (occurrence: None)
  Receive Date: 20120106
  Receipt Date: 20111228
  Transmission Date: 20120608
  Serious: Yes (Life-Threatening, Hospitalization)
  Sender: FDA-Public Use
  Company Number: JP-EISAI INC-E7389-01772-CLI-JP

PATIENT
  Sex: Female
  Weight: 53 kg

DRUGS (10)
  1. FERROUS CITRATE [Concomitant]
     Route: 048
  2. SHAKUYAKU-KANZO-TO [Concomitant]
     Indication: PROPHYLAXIS
     Route: 048
  3. EPIRUBICIN HYDROCHLORIDE [Suspect]
     Indication: METASTASES TO LIVER
  4. EPIRUBICIN HYDROCHLORIDE [Suspect]
     Indication: METASTASES TO LYMPH NODES
  5. PREGABALIN [Concomitant]
     Indication: PROPHYLAXIS
     Route: 048
  6. EPIRUBICIN HYDROCHLORIDE [Suspect]
     Indication: BREAST CANCER RECURRENT
     Route: 041
     Dates: start: 20110926, end: 20111114
  7. EPIRUBICIN HYDROCHLORIDE [Suspect]
  8. EPIRUBICIN HYDROCHLORIDE [Suspect]
     Indication: METASTASES TO BONE
  9. EPIRUBICIN HYDROCHLORIDE [Suspect]
     Indication: METASTASES TO LUNG
  10. TELEMINSOFT [Concomitant]
     Indication: PROPHYLAXIS

REACTIONS (2)
  - HEPATIC FUNCTION ABNORMAL [None]
  - SEPTIC SHOCK [None]
